FAERS Safety Report 25450762 (Version 1)
Quarter: 2025Q2

REPORT INFORMATION
  Report Type: Spontaneous
  Country: US (occurrence: US)
  Receive Date: 20250618
  Receipt Date: 20250618
  Transmission Date: 20250716
  Serious: No
  Sender: AUROBINDO
  Company Number: US-AUROBINDO-AUR-APL-2025-012732

PATIENT
  Age: 47 Year
  Sex: Female
  Weight: 24.94 kg

DRUGS (1)
  1. MEDROXYPROGESTERONE [Suspect]
     Active Substance: MEDROXYPROGESTERONE
     Indication: Product used for unknown indication
     Route: 030

REACTIONS (3)
  - Weight decreased [Not Recovered/Not Resolved]
  - Illness [Unknown]
  - Nausea [Unknown]
